FAERS Safety Report 9716121 (Version 1)
Quarter: 2013Q4

REPORT INFORMATION
  Report Type: Spontaneous
  Country: US (occurrence: None)
  Receive Date: 20131126
  Receipt Date: 20131126
  Transmission Date: 20140711
  Serious: Yes (Hospitalization)
  Sender: FDA-Public Use
  Company Number: None

PATIENT
  Age: 88 Year
  Sex: Male
  Weight: 69.1 kg

DRUGS (1)
  1. GEMCITABINE [Suspect]
     Indication: TRANSITIONAL CELL CARCINOMA URETHRA
     Dosage: 1900 MG   OTHER  IV
     Route: 042
     Dates: start: 20121105

REACTIONS (5)
  - Dyspnoea [None]
  - Anaemia [None]
  - Thrombocytopenia [None]
  - Local swelling [None]
  - Renal disorder [None]
